FAERS Safety Report 18714534 (Version 1)
Quarter: 2021Q1

REPORT INFORMATION
  Report Type: Spontaneous
  Country: US (occurrence: US)
  Receive Date: 20210108
  Receipt Date: 20210108
  Transmission Date: 20210419
  Serious: Yes (Other)
  Sender: FDA-Public Use
  Company Number: US-ASTELLAS-2021US000188

PATIENT
  Age: 27 Year
  Sex: Male

DRUGS (2)
  1. PREDNISONE. [Concomitant]
     Active Substance: PREDNISONE
     Indication: GLOMERULONEPHRITIS MEMBRANOUS
     Dosage: UNK UNK, UNKNOWN FREQ.
     Route: 065
  2. TACROLIMUS. [Suspect]
     Active Substance: TACROLIMUS
     Indication: GLOMERULONEPHRITIS MEMBRANOUS
     Dosage: UNK, UNKNOWN FREQ.
     Route: 065

REACTIONS (4)
  - Product use in unapproved indication [Unknown]
  - Hypertensive emergency [Recovering/Resolving]
  - Acute kidney injury [Not Recovered/Not Resolved]
  - Posterior reversible encephalopathy syndrome [Recovering/Resolving]
